FAERS Safety Report 4894565-3 (Version None)
Quarter: 2006Q1

REPORT INFORMATION
  Report Type: 
  Country: None (occurrence: None)
  Receive Date: 20060127
  Receipt Date: 20060104
  Transmission Date: 20060701
  Serious: Yes (Hospitalization)
  Sender: FDA-Public Use
  Company Number: US-MERCK-0601USA00651

PATIENT
  Age: 66 Year
  Sex: Female
  Weight: 100 kg

DRUGS (2)
  1. VIOXX [Suspect]
     Indication: ARTHRITIS
     Route: 048
     Dates: start: 20000101, end: 20040101
  2. ASPIRIN [Concomitant]
     Route: 065
     Dates: start: 20000101

REACTIONS (6)
  - ANGINA PECTORIS [None]
  - ARTHROPATHY [None]
  - CARDIAC DISORDER [None]
  - CARDIAC FAILURE CONGESTIVE [None]
  - GASTROINTESTINAL DISORDER [None]
  - STAPHYLOCOCCAL INFECTION [None]
